FAERS Safety Report 7310561-0 (Version None)
Quarter: 2011Q1

REPORT INFORMATION
  Report Type: 
  Country: None (occurrence: None)
  Receive Date: 20110224
  Receipt Date: 20100107
  Transmission Date: 20110831
  Serious: No
  Sender: FDA-Public Use
  Company Number: US-BRISTOL-MYERS SQUIBB COMPANY-14925309

PATIENT
  Age: 58 Year
  Sex: Male

DRUGS (2)
  1. AMARYL [Suspect]
     Indication: TYPE 2 DIABETES MELLITUS
     Dates: start: 20090301, end: 20090301
  2. GLUCOPHAGE [Suspect]

REACTIONS (4)
  - ASTHENIA [None]
  - BLOOD GLUCOSE DECREASED [None]
  - TREMOR [None]
  - HYPERHIDROSIS [None]
